FAERS Safety Report 6611394-0 (Version None)
Quarter: 2010Q1

REPORT INFORMATION
  Report Type: 
  Country: None (occurrence: None)
  Receive Date: 20100303
  Receipt Date: 20100224
  Transmission Date: 20100710
  Serious: Yes (Other)
  Sender: FDA-Public Use
  Company Number: GB-JNJFOC-20091205309

PATIENT
  Sex: Female
  Weight: 63 kg

DRUGS (4)
  1. REMICADE [Suspect]
     Indication: PYODERMA GANGRENOSUM
     Route: 042
  2. REMICADE [Suspect]
     Route: 042
  3. PREDNISOLONE [Concomitant]
  4. CETIRIZINE HCL [Concomitant]

REACTIONS (8)
  - FACE OEDEMA [None]
  - FEELING HOT [None]
  - FLUSHING [None]
  - INFUSION RELATED REACTION [None]
  - PALPITATIONS [None]
  - PARAESTHESIA [None]
  - PYREXIA [None]
  - TACHYCARDIA [None]
